FAERS Safety Report 11847934 (Version 6)
Quarter: 2016Q2

REPORT INFORMATION
  Report Type: Report from Study
  Country: AT (occurrence: AT)
  Receive Date: 20151217
  Receipt Date: 20160624
  Transmission Date: 20160815
  Serious: Yes (Death, Hospitalization, Other)
  Sender: FDA-Public Use
  Company Number: AT-INCYTE CORPORATION-2015IN002963

PATIENT
  Age: 75 Year
  Sex: Female

DRUGS (15)
  1. THROMBOREDUCTIN [Concomitant]
     Indication: PRODUCT USED FOR UNKNOWN INDICATION
     Dosage: UNK
     Route: 065
  2. PANTOLOC//PANTOPRAZOLE SODIUM SESQUIHYDRATE [Concomitant]
     Active Substance: PANTOPRAZOLE SODIUM
     Indication: PRODUCT USED FOR UNKNOWN INDICATION
     Dosage: 40 MG, QD (1-0-0)
     Route: 065
  3. VIROPEL [Concomitant]
     Dosage: 500 MG, QHS (0-0-1)
  4. EXJADE [Concomitant]
     Active Substance: DEFERASIROX
     Indication: PRODUCT USED FOR UNKNOWN INDICATION
     Dosage: 500 MG, QD (1-0-0)
     Route: 065
  5. NOVALGIN [Concomitant]
     Active Substance: METAMIZOLE SODIUM
     Indication: PRODUCT USED FOR UNKNOWN INDICATION
     Dosage: 3 DF, PRN
     Route: 065
  6. JAKAFI [Suspect]
     Active Substance: RUXOLITINIB
     Indication: MYELOFIBROSIS
     Dosage: 15 MG, BID
     Route: 048
     Dates: start: 20150307, end: 20151222
  7. UROSIN [Concomitant]
     Active Substance: ALLOPURINOL
     Indication: PRODUCT USED FOR UNKNOWN INDICATION
     Dosage: 300 MG, (0-0-1/2)
     Route: 065
  8. UROSIN [Concomitant]
     Active Substance: ALLOPURINOL
     Dosage: 150 MG, QD
  9. VIROPEL [Concomitant]
     Dosage: 500 MG, QHS (0-0-1)
  10. ASPIRIN. [Concomitant]
     Active Substance: ASPIRIN
     Indication: PRODUCT USED FOR UNKNOWN INDICATION
     Dosage: UNK
     Route: 065
  11. VIROPEL [Concomitant]
     Dosage: 500 MG, QHS (0-0-1)
  12. UROSIN [Concomitant]
     Active Substance: ALLOPURINOL
     Dosage: 150 MG, QD
  13. VIROPEL [Concomitant]
     Indication: PRODUCT USED FOR UNKNOWN INDICATION
     Dosage: 500 MG, QD (0-0-1)
     Route: 065
  14. VIROPEL [Concomitant]
     Dosage: 500 MG, QHS (0-0-1)
  15. UROSIN [Concomitant]
     Active Substance: ALLOPURINOL
     Dosage: 150 MG, QD

REACTIONS (39)
  - General physical health deterioration [Not Recovered/Not Resolved]
  - Amylase increased [Unknown]
  - Blood urea increased [Unknown]
  - Blood triglycerides increased [Unknown]
  - Haemoglobin decreased [Unknown]
  - Abscess neck [Unknown]
  - Blood glucose decreased [Unknown]
  - Blood phosphorus increased [Unknown]
  - Epistaxis [Recovered/Resolved]
  - Multiple organ dysfunction syndrome [Fatal]
  - Gamma-glutamyltransferase increased [Unknown]
  - Glomerular filtration rate decreased [Unknown]
  - Blood lactate dehydrogenase increased [Unknown]
  - Blood cholinesterase decreased [Unknown]
  - Pyrexia [Recovered/Resolved]
  - Lymph node tuberculosis [Fatal]
  - Spinal cord abscess [Fatal]
  - Red blood cell count decreased [Unknown]
  - Cervical myelopathy [Not Recovered/Not Resolved]
  - Lymphadenitis [Unknown]
  - Blood chloride decreased [Unknown]
  - Haematocrit decreased [Unknown]
  - Anaemia [Unknown]
  - Lipase increased [Unknown]
  - Blood alkaline phosphatase increased [Unknown]
  - Activated partial thromboplastin time prolonged [Unknown]
  - C-reactive protein increased [Unknown]
  - Protein total decreased [Unknown]
  - Thrombocytopenia [Unknown]
  - Blood creatinine increased [Unknown]
  - Blood potassium increased [Unknown]
  - Platelet count decreased [Unknown]
  - Blood albumin decreased [Unknown]
  - Blood uric acid increased [Unknown]
  - Essential hypertension [Unknown]
  - Nephropathy [Unknown]
  - White blood cell count decreased [Unknown]
  - Mycobacterial infection [Not Recovered/Not Resolved]
  - Thrombocytosis [Unknown]

NARRATIVE: CASE EVENT DATE: 20150330
